FAERS Safety Report 8331689-2 (Version None)
Quarter: 2012Q2

REPORT INFORMATION
  Report Type: 
  Country: None (occurrence: None)
  Receive Date: 20120502
  Receipt Date: 20111014
  Transmission Date: 20120825
  Serious: No
  Sender: FDA-Public Use
  Company Number: US-ASTRAZENECA-2011SE61974

PATIENT
  Age: 43 Year
  Sex: Female
  Weight: 68 kg

DRUGS (7)
  1. ENTOCORT EC [Suspect]
     Dosage: 300 MG, 2 ONCE IN THE MORNING
     Route: 048
  2. SYNTHROID [Concomitant]
  3. PROTONIX [Concomitant]
  4. ADVIR [Concomitant]
  5. ENTOCORT EC [Suspect]
     Indication: COLITIS MICROSCOPIC
     Dosage: 300 MG, 3 ONCE IN THE MORNING
     Route: 048
  6. LEXAPRO [Concomitant]
  7. ASACOL HD [Concomitant]

REACTIONS (5)
  - MUSCULOSKELETAL STIFFNESS [None]
  - MYALGIA [None]
  - ARTHRALGIA [None]
  - CROHN'S DISEASE [None]
  - OFF LABEL USE [None]
